FAERS Safety Report 11170543 (Version 2)
Quarter: 2015Q2

REPORT INFORMATION
  Report Type: Report from Study
  Country: DE (occurrence: DE)
  Receive Date: 20150608
  Receipt Date: 20150619
  Transmission Date: 20150821
  Serious: Yes (Hospitalization, Other)
  Sender: FDA-Public Use
  Company Number: DE-BIOGENIDEC-2015BI074564

PATIENT
  Age: 34 Year
  Sex: Female

DRUGS (7)
  1. TILIDIN/NALOXON [Concomitant]
     Dates: start: 20141230
  2. ENOXAPARIN [Concomitant]
     Active Substance: ENOXAPARIN
     Dates: start: 20141230, end: 20150112
  3. DICLOFENAC [Concomitant]
     Active Substance: DICLOFENAC
     Dates: start: 20141230
  4. FERRUM SULFATE [Concomitant]
     Dates: start: 20141230
  5. METAMIZOLE [Concomitant]
     Active Substance: METAMIZOLE
     Dates: start: 20141230
  6. TYSABRI [Suspect]
     Active Substance: NATALIZUMAB
     Indication: RELAPSING-REMITTING MULTIPLE SCLEROSIS
     Dates: start: 20080703
  7. PANTOZOL [Concomitant]
     Active Substance: PANTOPRAZOLE SODIUM
     Dates: start: 20141230

REACTIONS (1)
  - Intervertebral disc protrusion [Recovered/Resolved]

NARRATIVE: CASE EVENT DATE: 20141230
